FAERS Safety Report 9105334 (Version 1)
Quarter: 2013Q1

REPORT INFORMATION
  Report Type: Spontaneous
  Country: US (occurrence: US)
  Receive Date: 20130220
  Receipt Date: 20130220
  Transmission Date: 20140127
  Serious: No
  Sender: FDA-Public Use
  Company Number: US-BAYER-2012-114517

PATIENT
  Age: 18 Year
  Sex: Male

DRUGS (1)
  1. KOGENATE FS [Suspect]

REACTIONS (3)
  - Medication error [None]
  - Drug dose omission [None]
  - Drug dose omission [None]
